FAERS Safety Report 8916049 (Version 1)
Quarter: 2012Q4

REPORT INFORMATION
  Report Type: 
  Country: US (occurrence: US)
  Receive Date: 20121119
  Receipt Date: 20121119
  Transmission Date: 20130627
  Serious: Yes (Other)
  Sender: FDA-Public Use
  Company Number: US-NOVEN-12US005642

PATIENT
  Age: 30 Year
  Sex: Female
  Weight: 143 kg

DRUGS (6)
  1. DAYTRANA [Suspect]
     Indication: ATTENTION DEFICIT/HYPERACTIVITY DISORDER
     Dosage: 10 mg, UNK
     Route: 062
     Dates: start: 20121102, end: 20121102
  2. DEPAKOTE [Concomitant]
     Indication: CONVULSION
     Dosage: 200 mg, UNK
     Route: 048
  3. DEPAKOTE [Concomitant]
     Indication: POST-TRAUMATIC STRESS DISORDER
  4. ABILIFY [Concomitant]
     Indication: BIPOLAR DISORDER
     Dosage: 10 mg, UNK
     Route: 048
  5. ABILIFY [Concomitant]
     Indication: POST-TRAUMATIC STRESS DISORDER
  6. XANAX [Concomitant]
     Indication: ANXIETY
     Dosage: 0.25 mg, UNK
     Route: 048

REACTIONS (12)
  - Dysarthria [Recovered/Resolved]
  - Feeling abnormal [Recovered/Resolved]
  - Hallucination [Recovered/Resolved]
  - Convulsion [Recovered/Resolved]
  - Anxiety [Recovered/Resolved]
  - Rash generalised [Not Recovered/Not Resolved]
  - Throat irritation [Recovered/Resolved]
  - Crying [Recovered/Resolved]
  - Hypersensitivity [Not Recovered/Not Resolved]
  - Heart rate increased [Not Recovered/Not Resolved]
  - Headache [Recovered/Resolved]
  - Off label use [Recovered/Resolved]
